FAERS Safety Report 25502785 (Version 1)
Quarter: 2025Q3

REPORT INFORMATION
  Report Type: Spontaneous
  Country: EU (occurrence: EU)
  Receive Date: 20250702
  Receipt Date: 20250702
  Transmission Date: 20251020
  Serious: Yes (Hospitalization)
  Sender: TEVA
  Company Number: None

PATIENT
  Age: 48 Year
  Sex: Male

DRUGS (2)
  1. METAMIZOLE [Suspect]
     Active Substance: METAMIZOLE
     Indication: Myalgia
     Route: 048
     Dates: start: 20250308, end: 20250314
  2. IBUPROFEN [Suspect]
     Active Substance: IBUPROFEN
     Indication: Myalgia
     Route: 048
     Dates: start: 20250308, end: 20250314

REACTIONS (2)
  - Acute kidney injury [Not Recovered/Not Resolved]
  - Condition aggravated [Not Recovered/Not Resolved]

NARRATIVE: CASE EVENT DATE: 20250314
